FAERS Safety Report 7252012-0 (Version None)
Quarter: 2011Q1

REPORT INFORMATION
  Report Type: 
  Country: None (occurrence: None)
  Receive Date: 20110128
  Receipt Date: 20100125
  Transmission Date: 20110831
  Serious: No
  Sender: FDA-Public Use
  Company Number: US-ABBOTT-10P-163-0619087-00

PATIENT
  Sex: Female
  Weight: 59.02 kg

DRUGS (7)
  1. PREDNISONE [Concomitant]
     Indication: CROHN'S DISEASE
  2. HUMIRA [Suspect]
     Indication: RHEUMATOID ARTHRITIS
     Dates: start: 20090702, end: 20090702
  3. HUMIRA [Suspect]
     Indication: CROHN'S DISEASE
     Dates: start: 20090701
  4. ATENOLOL [Concomitant]
     Indication: HYPERTENSION
  5. METHOTREXATE [Concomitant]
     Indication: RHEUMATOID ARTHRITIS
  6. METHOTREXATE [Concomitant]
     Indication: CROHN'S DISEASE
     Dates: start: 20090101
  7. PREDNISONE [Concomitant]
     Indication: RHEUMATOID ARTHRITIS

REACTIONS (8)
  - ILL-DEFINED DISORDER [None]
  - FATIGUE [None]
  - HEADACHE [None]
  - SINUSITIS [None]
  - VITAMIN B12 DEFICIENCY [None]
  - ARTHRITIS [None]
  - MALAISE [None]
  - PRURITUS [None]
